FAERS Safety Report 5153868-8 (Version None)
Quarter: 2006Q4

REPORT INFORMATION
  Report Type: 
  Country: None (occurrence: None)
  Receive Date: 20061120
  Receipt Date: 20061108
  Transmission Date: 20070319
  Serious: Yes (Hospitalization, Disabling)
  Sender: FDA-Public Use
  Company Number: CN-JNJFOC-20061102403

PATIENT
  Age: 28 Year
  Sex: Female

DRUGS (9)
  1. RISPERDAL [Suspect]
     Route: 048
  2. RISPERDAL [Suspect]
     Route: 048
  3. RISPERDAL [Suspect]
     Indication: SCHIZOPHRENIA
     Route: 048
  4. TRIHEXYPHENIDYL HCL [Concomitant]
     Indication: DYSPHAGIA
     Route: 048
  5. TRIHEXYPHENIDYL HCL [Concomitant]
     Indication: DROOLING
     Route: 048
  6. SCOPOLAMINE [Concomitant]
     Indication: DYSPHAGIA
  7. SCOPOLAMINE [Concomitant]
     Indication: DROOLING
  8. PREDNISONE TAB [Concomitant]
     Indication: DYSPHAGIA
     Route: 048
  9. PREDNISONE TAB [Concomitant]
     Indication: DROOLING
     Route: 048

REACTIONS (2)
  - MUSCLE SPASMS [None]
  - TALIPES [None]
